FAERS Safety Report 5143739-5 (Version None)
Quarter: 2006Q4

REPORT INFORMATION
  Report Type: 
  Country: None (occurrence: None)
  Receive Date: 20061106
  Receipt Date: 20061024
  Transmission Date: 20070319
  Serious: Yes (Death)
  Sender: FDA-Public Use
  Company Number: DE-BAYER-200611409BVD

PATIENT
  Sex: Male

DRUGS (2)
  1. LEVITRA [Suspect]
     Route: 048
  2. VIAGRA [Concomitant]
     Route: 048

REACTIONS (2)
  - DEATH [None]
  - MYOCARDIAL INFARCTION [None]
